FAERS Safety Report 5413297-6 (Version None)
Quarter: 2007Q3

REPORT INFORMATION
  Report Type: 
  Country: None (occurrence: None)
  Receive Date: 20070810
  Receipt Date: 20070713
  Transmission Date: 20080115
  Serious: Yes (Hospitalization)
  Sender: FDA-Public Use
  Company Number: 2007RR-08715

PATIENT
  Age: 45 Year
  Sex: Female

DRUGS (6)
  1. SERTRALINE [Suspect]
     Indication: DEPRESSION
     Dosage: 50 MG, QD; 100 MG, QD
  2. ALPRAZOLAM [Concomitant]
  3. CLONAZEPAM [Concomitant]
  4. PROMETHAZINE HYDROCHLORIDE (PROMETHAZINE) [Concomitant]
  5. TRIHEXYPHENIDYL HCL [Concomitant]
  6. DOTHIEPIN HYDROCHLORIDE [Concomitant]

REACTIONS (4)
  - BLOOD LACTIC ACID INCREASED [None]
  - CRYING [None]
  - FEELINGS OF WORTHLESSNESS [None]
  - PARKINSONISM [None]
